FAERS Safety Report 8983717 (Version 1)
Quarter: 2012Q4

REPORT INFORMATION
  Report Type: 
  Country: DE (occurrence: DE)
  Receive Date: 20121224
  Receipt Date: 20121224
  Transmission Date: 20130627
  Serious: No
  Sender: FDA-Public Use
  Company Number: DE-MUTUAL PHARMACEUTICAL COMPANY, INC.-IBPF20120010

PATIENT
  Age: 41 Year
  Sex: Male

DRUGS (1)
  1. IBUPROFEN [Suspect]
     Indication: SHOULDER PAIN
     Route: 065

REACTIONS (2)
  - Optic neuritis [None]
  - Visual field defect [None]
